FAERS Safety Report 10230494 (Version 1)
Quarter: 2014Q2

REPORT INFORMATION
  Report Type: Spontaneous
  Country: US (occurrence: US)
  Receive Date: 20140611
  Receipt Date: 20140611
  Transmission Date: 20141212
  Serious: No
  Sender: FDA-Public Use
  Company Number: US-INCYTE CORPORATION-2014IN000918

PATIENT
  Sex: Female

DRUGS (3)
  1. JAKAFI [Suspect]
     Indication: MYELOFIBROSIS
     Dosage: 10 MG, BID
     Route: 048
  2. LISINOPRIL HCTZ [Concomitant]
     Dosage: 10/12.5
  3. METOPROLOL COMP [Concomitant]
     Dosage: 100/25

REACTIONS (1)
  - Drug dose omission [Unknown]
